FAERS Safety Report 12036968 (Version 1)
Quarter: 2016Q1

REPORT INFORMATION
  Report Type: Spontaneous
  Country: US (occurrence: None)
  Receive Date: 20160204
  Receipt Date: 20160204
  Transmission Date: 20160526
  Serious: No
  Sender: FDA-Public Use
  Company Number: None

PATIENT
  Age: 50 Year
  Sex: Male
  Weight: 108.86 kg

DRUGS (19)
  1. HYDRALAZINE [Suspect]
     Active Substance: HYDRALAZINE HYDROCHLORIDE
     Indication: HYPERTENSION
     Dosage: ONCE DAILY, INTO A VEIN
     Route: 042
     Dates: start: 20160102, end: 20160103
  2. GLIPIZIDE. [Concomitant]
     Active Substance: GLIPIZIDE
  3. PRAVASTATIN [Concomitant]
     Active Substance: PRAVASTATIN\PRAVASTATIN SODIUM
  4. CLOPIDOGREL [Concomitant]
     Active Substance: CLOPIDOGREL BISULFATE
  5. CITALOPRAM [Concomitant]
     Active Substance: CITALOPRAM HYDROBROMIDE
  6. ASPIRIN. [Concomitant]
     Active Substance: ASPIRIN
  7. CYCLOSPORINE. [Concomitant]
     Active Substance: CYCLOSPORINE
  8. RANITIDINE [Concomitant]
     Active Substance: RANITIDINE\RANITIDINE HYDROCHLORIDE
  9. INSULIN DETEMIR [Concomitant]
     Active Substance: INSULIN DETEMIR
  10. NIFEDIPINE. [Concomitant]
     Active Substance: NIFEDIPINE
  11. FEBUXOSTAT. [Concomitant]
     Active Substance: FEBUXOSTAT
  12. INSULIN LISPRO [Concomitant]
     Active Substance: INSULIN LISPRO
  13. AZATHIORPINE [Concomitant]
     Active Substance: AZATHIOPRINE
  14. FUROSEMIDE. [Concomitant]
     Active Substance: FUROSEMIDE
  15. GEMFIBROZIL. [Concomitant]
     Active Substance: GEMFIBROZIL
  16. PREDNISONE. [Concomitant]
     Active Substance: PREDNISONE
  17. FISH OIL [Concomitant]
     Active Substance: FISH OIL
  18. CARVEDILOL. [Concomitant]
     Active Substance: CARVEDILOL
  19. MEN^S MULTIVITAMIN [Concomitant]

REACTIONS (2)
  - Pain [None]
  - Drug ineffective [None]

NARRATIVE: CASE EVENT DATE: 20160102
